FAERS Safety Report 9157437 (Version 1)
Quarter: 2013Q1

REPORT INFORMATION
  Report Type: Spontaneous
  Country: US (occurrence: None)
  Receive Date: 20130213
  Receipt Date: 20130213
  Transmission Date: 20140127
  Serious: Yes (Hospitalization)
  Sender: FDA-Public Use
  Company Number: DKLU1088821

PATIENT
  Age: 18 Month
  Sex: Male

DRUGS (3)
  1. SABRIL [Suspect]
     Dates: start: 20130116
  2. ONFI [Concomitant]
  3. TOPMAX (TOPIRAMATE) [Concomitant]

REACTIONS (2)
  - Mental status changes [None]
  - Sedation [None]
